FAERS Safety Report 4368802-8 (Version None)
Quarter: 2004Q2

REPORT INFORMATION
  Report Type: 
  Country: None (occurrence: None)
  Receive Date: 20040528
  Receipt Date: 20040517
  Transmission Date: 20050107
  Serious: Yes (Disabling, Other)
  Sender: FDA-Public Use
  Company Number: 2004033212

PATIENT
  Sex: Female
  Weight: 57.6068 kg

DRUGS (6)
  1. NEURONTIN [Suspect]
     Indication: DIABETIC NEUROPATHY
     Dosage: 100 MG,
  2. SIMVASTATIN [Concomitant]
  3. VALSARTAN (VALSARTAN) [Concomitant]
  4. ACETAMINOPHEN [Concomitant]
  5. RAMIPRIL [Concomitant]
  6. ALLERGY MEDICATION (ALLERGY MEDICATION) [Concomitant]

REACTIONS (2)
  - GANGRENE [None]
  - LEG AMPUTATION [None]
